FAERS Safety Report 13095046 (Version 9)
Quarter: 2018Q4

REPORT INFORMATION
  Report Type: Report from Study
  Country: None (occurrence: RO)
  Receive Date: 20170106
  Receipt Date: 20181113
  Transmission Date: 20190204
  Serious: Yes (Hospitalization, Other)
  Sender: FDA-Public Use
  Company Number: RO-ABBVIE-17P-135-1827843-00

PATIENT
  Age: 68 Year
  Sex: Female
  Weight: 60 kg

DRUGS (19)
  1. DUODOPA [Suspect]
     Active Substance: CARBIDOPA\LEVODOPA
     Route: 050
     Dates: start: 20170104, end: 20170104
  2. CONTROLOC [Concomitant]
     Active Substance: PANTOPRAZOLE SODIUM
     Indication: GASTROSTOMY
     Route: 042
     Dates: start: 20161121, end: 20161127
  3. SER FIZIOLOGIC [Concomitant]
     Indication: PRODUCT USED FOR UNKNOWN INDICATION
     Route: 042
     Dates: start: 20161121, end: 20161127
  4. ALGOCALMIN [Concomitant]
     Active Substance: METAMIZOLE SODIUM
     Indication: GASTROSTOMY
     Route: 051
     Dates: start: 20161121, end: 20161127
  5. ISICOM [Concomitant]
     Active Substance: CARBIDOPA\LEVODOPA
     Route: 048
     Dates: start: 20161231
  6. CONTROLOC [Concomitant]
     Active Substance: PANTOPRAZOLE SODIUM
     Indication: GASTRITIS PROPHYLAXIS
     Route: 048
     Dates: start: 20161128
  7. PRAMIPEXOLE. [Concomitant]
     Active Substance: PRAMIPEXOLE
     Indication: PARKINSON^S DISEASE
     Route: 048
     Dates: start: 2011, end: 20161117
  8. NO-SPA [Concomitant]
     Active Substance: DROTAVERINE HYDROCHLORIDE
     Indication: GASTROSTOMY
     Route: 051
     Dates: start: 20161121, end: 20161127
  9. PANTOPRAZOLUM [Concomitant]
     Indication: GASTRIC ULCER
     Route: 048
     Dates: start: 20170112, end: 20170115
  10. ISICOM [Concomitant]
     Active Substance: CARBIDOPA\LEVODOPA
     Indication: PARKINSON^S DISEASE
     Route: 048
     Dates: start: 2011, end: 20161117
  11. CEFORT [Concomitant]
     Active Substance: CEFTRIAXONE SODIUM
     Indication: INFECTION PROPHYLAXIS
     Route: 042
     Dates: start: 20161121, end: 20161127
  12. BIOTICS [Concomitant]
     Indication: ADJUVANT THERAPY
     Dosage: BIOTICS-LACTOBACILLUS ACIDOPHILUS 4,72 MG, BIFIDOBACTERIUM BREVE 2,02MG
     Route: 048
     Dates: start: 20161021, end: 20161127
  13. URSOFALK [Concomitant]
     Active Substance: URSODIOL
     Indication: GASTRITIS PROPHYLAXIS
     Route: 048
     Dates: start: 20161128
  14. TOTHEMA [Concomitant]
     Active Substance: COPPER GLUCONATE\FERROUS GLUCONATE\MANGANESE GLUCONATE
     Indication: GASTRIC HAEMORRHAGE
     Route: 048
     Dates: start: 20170113
  15. DUODOPA [Suspect]
     Active Substance: CARBIDOPA\LEVODOPA
     Indication: PARKINSON^S DISEASE
     Dosage: TITRATION: DOSING AT END OF TITRATION: MD: 8ML, CD: 3.9ML, ED: 1.9ML, 5X/D, 16 H
     Route: 050
     Dates: start: 20161118, end: 20161121
  16. DULOXETINA [Concomitant]
     Active Substance: DULOXETINE
     Indication: DEPRESSION
     Route: 048
     Dates: start: 20161129
  17. DUODOPA [Suspect]
     Active Substance: CARBIDOPA\LEVODOPA
     Dosage: DOSING AT TIME OF EVENT: CD: 3.9 ML/H
     Route: 050
     Dates: start: 20161121, end: 20161231
  18. AZILECT [Concomitant]
     Active Substance: RASAGILINE MESYLATE
     Indication: PARKINSON^S DISEASE
     Route: 048
     Dates: start: 201609, end: 20161117
  19. EPICOGEL [Concomitant]
     Indication: GASTRIC ULCER
     Route: 048
     Dates: start: 20170112, end: 20170115

REACTIONS (4)
  - Hypotension [Recovered/Resolved]
  - Seizure [Recovered/Resolved]
  - Humerus fracture [Not Recovered/Not Resolved]
  - Hyponatraemia [Recovered/Resolved]

NARRATIVE: CASE EVENT DATE: 20161227
